FAERS Safety Report 9530220 (Version 3)
Quarter: 2013Q4

REPORT INFORMATION
  Report Type: Report from Study
  Country: US (occurrence: US)
  Receive Date: 20130917
  Receipt Date: 20131031
  Transmission Date: 20140711
  Serious: Yes (Hospitalization, Other)
  Sender: FDA-Public Use
  Company Number: US-ABBVIE-13P-163-1143649-00

PATIENT
  Age: 45 Year
  Sex: Female
  Weight: 88.98 kg

DRUGS (3)
  1. HUMIRA [Suspect]
     Indication: PSORIATIC ARTHROPATHY
     Dosage: INITIAL DOSE ONLY
     Dates: start: 20130802, end: 20130802
  2. LISINOPRIL [Concomitant]
     Indication: PRODUCT USED FOR UNKNOWN INDICATION
  3. METOPROLOL [Concomitant]
     Indication: PRODUCT USED FOR UNKNOWN INDICATION

REACTIONS (11)
  - Grand mal convulsion [Not Recovered/Not Resolved]
  - Apnoea [Not Recovered/Not Resolved]
  - Spinal fracture [Unknown]
  - Pain [Unknown]
  - Blood pressure increased [Unknown]
  - Central nervous system lesion [Recovering/Resolving]
  - Cerebrovascular accident [Unknown]
  - Brain hypoxia [Recovered/Resolved]
  - Amnesia [Not Recovered/Not Resolved]
  - Muscular weakness [Not Recovered/Not Resolved]
  - Agitation [Not Recovered/Not Resolved]
